FAERS Safety Report 16425132 (Version 1)
Quarter: 2019Q2

REPORT INFORMATION
  Report Type: Report from Study
  Country: None (occurrence: FR)
  Receive Date: 20190613
  Receipt Date: 20190613
  Transmission Date: 20190711
  Serious: Yes (Hospitalization)
  Sender: FDA-Public Use
  Company Number: FR-OREXO US, INC.-E2B_00000130

PATIENT
  Age: 24 Year
  Sex: Male

DRUGS (67)
  1. CITALOPRAM [Concomitant]
     Active Substance: CITALOPRAM HYDROBROMIDE
     Indication: PRODUCT USED FOR UNKNOWN INDICATION
     Dosage: UNKNOWN
  2. BLINDED TEMGESIC [Suspect]
     Active Substance: BUPRENORPHINE HYDROCHLORIDE
     Dosage: 0.4 MG
  3. SUBOXONE [Suspect]
     Active Substance: BUPRENORPHINE HYDROCHLORIDE\NALOXONE HYDROCHLORIDE
  4. BUPRENEX [Suspect]
     Active Substance: BUPRENORPHINE HYDROCHLORIDE
  5. SUBUTEX [Suspect]
     Active Substance: BUPRENORPHINE HYDROCHLORIDE
  6. SUBOXONE [Suspect]
     Active Substance: BUPRENORPHINE HYDROCHLORIDE\NALOXONE HYDROCHLORIDE
     Dosage: 12 MG
  7. BLINDED BUPRINE [Suspect]
     Active Substance: BUPRENORPHINE HYDROCHLORIDE
  8. BUPRENORPHINE. [Suspect]
     Active Substance: BUPRENORPHINE
     Indication: PRODUCT USED FOR UNKNOWN INDICATION
  9. BLINDED NOPAN [BUPRENORPHINE] [Suspect]
     Active Substance: BUPRENORPHINE
  10. BLINDED TEMGESIC [Suspect]
     Active Substance: BUPRENORPHINE HYDROCHLORIDE
  11. BLINDED BUPRENORPHINE/ NALOXONE [Suspect]
     Active Substance: BUPRENORPHINE\NALOXONE
  12. SUBUTEX [Suspect]
     Active Substance: BUPRENORPHINE HYDROCHLORIDE
     Dosage: 2 MG
  13. BUPRENORPHINE / NALOXONE [Suspect]
     Active Substance: BUPRENORPHINE\NALOXONE
  14. OXAZEPAM. [Suspect]
     Active Substance: OXAZEPAM
     Indication: PRODUCT USED FOR UNKNOWN INDICATION
  15. NORSPAN [Suspect]
     Active Substance: BUPRENORPHINE
  16. BLINDED BUPRENORPHINE GENERIC [Suspect]
     Active Substance: BUPRENORPHINE
  17. BLINDED LEPETAN SUPPOSITORY [Suspect]
     Active Substance: BUPRENORPHINE HYDROCHLORIDE
  18. BLINDED BUPRENORPHINE GENERIC [Suspect]
     Active Substance: BUPRENORPHINE
  19. BLINDED LEPETAN [Suspect]
     Active Substance: BUPRENORPHINE HYDROCHLORIDE
  20. PROBUPHINE [Suspect]
     Active Substance: BUPRENORPHINE HYDROCHLORIDE
  21. BUTRANS [Suspect]
     Active Substance: BUPRENORPHINE
  22. ZOPICLONE [Suspect]
     Active Substance: ZOPICLONE
     Indication: PRODUCT USED FOR UNKNOWN INDICATION
  23. SUBLOCADE [Suspect]
     Active Substance: BUPRENORPHINE
     Dosage: 100 MG
  24. BELBUCA [Suspect]
     Active Substance: BUPRENORPHINE HYDROCHLORIDE
  25. AMYL NITRITE. [Suspect]
     Active Substance: AMYL NITRITE
     Indication: PRODUCT USED FOR UNKNOWN INDICATION
     Dosage: 4 POWERFUL INHALATIONS
  26. SUBOXONE [Suspect]
     Active Substance: BUPRENORPHINE HYDROCHLORIDE\NALOXONE HYDROCHLORIDE
     Dosage: 8 MG
  27. BLINDED BUPREX 0.3 MG INJECTION [Suspect]
     Active Substance: BUPRENORPHINE HYDROCHLORIDE
     Dosage: 0.3 MG
  28. SUBLOCADE [Suspect]
     Active Substance: BUPRENORPHINE
  29. BLINDED TEMGESIC [Suspect]
     Active Substance: BUPRENORPHINE HYDROCHLORIDE
  30. BLINDED BUPRENORPHINE/NALOXONE FILM [Suspect]
     Active Substance: BUPRENORPHINE\NALOXONE
  31. SUBLOCADE [Suspect]
     Active Substance: BUPRENORPHINE
     Dosage: 300 MG
  32. BUNAVAIL [Suspect]
     Active Substance: BUPRENORPHINE HYDROCHLORIDE\NALOXONE HYDROCHLORIDE
  33. SUBUTEX [Suspect]
     Active Substance: BUPRENORPHINE HYDROCHLORIDE
  34. BLINDED PENTOREL [Suspect]
     Active Substance: BUPRENORPHINE
  35. SUBOXONE [Suspect]
     Active Substance: BUPRENORPHINE HYDROCHLORIDE\NALOXONE HYDROCHLORIDE
     Dosage: 4 MG
  36. SUBOXONE [Suspect]
     Active Substance: BUPRENORPHINE HYDROCHLORIDE\NALOXONE HYDROCHLORIDE
     Dosage: 16 MG
  37. BLINDED TIDIGESIC [Suspect]
     Active Substance: BUPRENORPHINE
  38. BLINDED BUPRENORPHINE/ NALOXONE GENERIC [Suspect]
     Active Substance: BUPRENORPHINE\NALOXONE
  39. BLINDED TRANSTEC [Suspect]
     Active Substance: BUPRENORPHINE
  40. BLINDED BUNONDOL [Suspect]
     Active Substance: BUPRENORPHINE HYDROCHLORIDE
  41. BLINDED ADDNOK [Suspect]
     Active Substance: BUPRENORPHINE HYDROCHLORIDE
  42. HYDROXYZINE [Concomitant]
     Active Substance: HYDROXYZINE HYDROCHLORIDE
     Indication: PRODUCT USED FOR UNKNOWN INDICATION
     Dosage: UNKNOWN
  43. SUBOXONE [Suspect]
     Active Substance: BUPRENORPHINE HYDROCHLORIDE\NALOXONE HYDROCHLORIDE
     Dosage: 8 MG
  44. SUBUTEX [Suspect]
     Active Substance: BUPRENORPHINE HYDROCHLORIDE
     Dosage: 8 MG
  45. ZOLPIDEM TARTRATE. [Suspect]
     Active Substance: ZOLPIDEM TARTRATE
     Indication: PRODUCT USED FOR UNKNOWN INDICATION
  46. BLINDED BUPRENORPHINE [Suspect]
     Active Substance: BUPRENORPHINE
  47. ZUBSOLV [Suspect]
     Active Substance: BUPRENORPHINE HYDROCHLORIDE\NALOXONE HYDROCHLORIDE
  48. NORSPAN [Suspect]
     Active Substance: BUPRENORPHINE
  49. ZOPICLONE [Suspect]
     Active Substance: ZOPICLONE
     Indication: PRODUCT USED FOR UNKNOWN INDICATION
  50. SUBOXONE [Suspect]
     Active Substance: BUPRENORPHINE HYDROCHLORIDE\NALOXONE HYDROCHLORIDE
  51. SUBOXONE [Suspect]
     Active Substance: BUPRENORPHINE HYDROCHLORIDE\NALOXONE HYDROCHLORIDE
  52. BLINDED BUPRENORPHINE PATCH GENERIC [Suspect]
     Active Substance: BUPRENORPHINE
  53. BLINDED TEMGESIC [Suspect]
     Active Substance: BUPRENORPHINE HYDROCHLORIDE
     Dosage: 0.3 MG
  54. BLINDED NALTREXONE [Suspect]
     Active Substance: NALTREXONE
  55. SUBOXONE [Suspect]
     Active Substance: BUPRENORPHINE HYDROCHLORIDE\NALOXONE HYDROCHLORIDE
  56. BLINDED BUPRENORPHINE GENERIC [Suspect]
     Active Substance: BUPRENORPHINE
  57. BLINDED BUPRENORPHINE GENERIC [Suspect]
     Active Substance: BUPRENORPHINE
  58. SUBUTEX [Suspect]
     Active Substance: BUPRENORPHINE HYDROCHLORIDE
     Dosage: 0.4 MG
  59. BUPRENEX [Suspect]
     Active Substance: BUPRENORPHINE HYDROCHLORIDE
     Dosage: 0.3 MG
  60. BLINDED ADDNOK-N [Suspect]
     Active Substance: BUPRENORPHINE HYDROCHLORIDE\NALOXONE HYDROCHLORIDE
  61. BLINDED TEMGESIC TABLET [Suspect]
     Active Substance: BUPRENORPHINE HYDROCHLORIDE
     Dosage: 0.2 MG
  62. SUBOXONE [Suspect]
     Active Substance: BUPRENORPHINE HYDROCHLORIDE\NALOXONE HYDROCHLORIDE
     Dosage: 2 MG
  63. BLINDED SHUMEIFEN [Suspect]
     Active Substance: BUPRENORPHINE
  64. BLINDED BROSPINA [Suspect]
     Active Substance: BUPRENORPHINE HYDROCHLORIDE
  65. SUBOXONE [Suspect]
     Active Substance: BUPRENORPHINE HYDROCHLORIDE\NALOXONE HYDROCHLORIDE
  66. BLINDED LEPETAN [Suspect]
     Active Substance: BUPRENORPHINE HYDROCHLORIDE
  67. SUBOXONE [Suspect]
     Active Substance: BUPRENORPHINE HYDROCHLORIDE\NALOXONE HYDROCHLORIDE
     Dosage: 2 MG

REACTIONS (8)
  - Tachyphrenia [Recovering/Resolving]
  - Dysstasia [Recovering/Resolving]
  - Methaemoglobinaemia [Recovering/Resolving]
  - Somnolence [Recovering/Resolving]
  - Logorrhoea [Recovering/Resolving]
  - Muscular weakness [Recovering/Resolving]
  - Agitation [Recovering/Resolving]
  - Skin discolouration [Recovering/Resolving]
